FAERS Safety Report 9431222 (Version 1)
Quarter: 2013Q3

REPORT INFORMATION
  Report Type: Spontaneous
  Country: FR (occurrence: FR)
  Receive Date: 20130730
  Receipt Date: 20130730
  Transmission Date: 20140515
  Serious: Yes (Death)
  Sender: FDA-Public Use
  Company Number: FR-ROXANE LABORATORIES, INC.-2013-RO-01225RO

PATIENT
  Age: 63 Year
  Sex: Male

DRUGS (2)
  1. PREDNISONE [Suspect]
     Indication: GRANULOMATOSIS WITH POLYANGIITIS
     Dosage: 14 MG
     Dates: end: 1994
  2. CYCLOPHOSPHAMIDE [Suspect]
     Indication: GRANULOMATOSIS WITH POLYANGIITIS
     Route: 042
     Dates: end: 199311

REACTIONS (1)
  - Progressive multifocal leukoencephalopathy [Fatal]
